FAERS Safety Report 7956048-3 (Version None)
Quarter: 2011Q4

REPORT INFORMATION
  Report Type: 
  Country: None (occurrence: None)
  Receive Date: 20111205
  Receipt Date: 20111130
  Transmission Date: 20120403
  Serious: Yes (Hospitalization)
  Sender: FDA-Public Use
  Company Number: US-PFIZER INC-2011293307

PATIENT
  Sex: Female

DRUGS (1)
  1. CORDARONE [Suspect]
     Dosage: HANDLED HUSBANDS CORDARONE OVER A PERIOD OF 5 YEARS-DOSE NOT PROVIDED

REACTIONS (1)
  - PULMONARY FIBROSIS [None]
